FAERS Safety Report 5459920-1 (Version None)
Quarter: 2007Q3

REPORT INFORMATION
  Report Type: 
  Country: None (occurrence: None)
  Receive Date: 20070919
  Receipt Date: 20070501
  Transmission Date: 20080115
  Serious: No
  Sender: FDA-Public Use
  Company Number: US-ASTRAZENECA-2007UW09271

PATIENT
  Age: 37 Year
  Sex: Female
  Weight: 145.1 kg

DRUGS (4)
  1. SEROQUEL [Suspect]
     Indication: BIPOLAR DISORDER
     Route: 048
  2. SEROQUEL [Suspect]
     Route: 048
  3. DENAZEPRIL [Concomitant]
  4. EFFEXOR [Concomitant]

REACTIONS (3)
  - ACCIDENTAL OVERDOSE [None]
  - HEADACHE [None]
  - MEDICATION ERROR [None]
